FAERS Safety Report 7387376-0 (Version None)
Quarter: 2011Q1

REPORT INFORMATION
  Report Type: 
  Country: None (occurrence: None)
  Receive Date: 20110331
  Receipt Date: 20110317
  Transmission Date: 20110831
  Serious: Yes (Other)
  Sender: FDA-Public Use
  Company Number: PHHY2011US20107

PATIENT
  Sex: Female

DRUGS (11)
  1. IBUPROFEN [Concomitant]
     Indication: HEADACHE
     Dosage: 600 MG, TID OR PRN
  2. ASCORBIC ACID [Concomitant]
     Dosage: 500 MG, BID
  3. VITAMIN A [Concomitant]
     Dosage: UNK
  4. PROVIGIL [Concomitant]
     Indication: FATIGUE
     Dosage: 200 MG, QD
     Route: 048
  5. CRANBURY [Concomitant]
     Dosage: UNK
  6. GILENYA [Suspect]
     Indication: MULTIPLE SCLEROSIS
     Dosage: 0.5 MG, DAILY
     Route: 048
     Dates: start: 20110127
  7. ZANTAC [Concomitant]
     Dosage: 150 MG, BID
     Route: 048
  8. CYCLOBENZAPRINE [Concomitant]
     Dosage: 10 MG, UNK
     Route: 048
  9. VITAMIN D [Concomitant]
     Dosage: 4000 IU, UNK
     Route: 048
  10. VITAMIN B-12 [Concomitant]
     Dosage: 1000 UG, DAILY
     Route: 048
  11. CYSTEINE [Concomitant]
     Dosage: 500 MG, BID
     Route: 048

REACTIONS (3)
  - MALAISE [None]
  - ABDOMINAL PAIN LOWER [None]
  - URINARY TRACT INFECTION [None]
